FAERS Safety Report 7102695-0 (Version None)
Quarter: 2010Q4

REPORT INFORMATION
  Report Type: 
  Country: None (occurrence: None)
  Receive Date: 20101115
  Receipt Date: 20100921
  Transmission Date: 20110411
  Serious: Yes (Other)
  Sender: FDA-Public Use
  Company Number: PHHY2010BR72705

PATIENT
  Age: 75 Year
  Sex: Female

DRUGS (3)
  1. AMLODIPINE BESYLATE AND VALSARTAN [Suspect]
     Dosage: 80/5 MG
     Dates: start: 20040101, end: 20050101
  2. EXFORGE [Suspect]
     Dosage: UNK
     Dates: start: 20050101, end: 20100101
  3. AMLODIPINE [Concomitant]
     Dosage: UNK
     Dates: end: 20030101

REACTIONS (2)
  - OSTEOARTHRITIS [None]
  - OSTEOPOROSIS [None]
